FAERS Safety Report 11533894 (Version 3)
Quarter: 2016Q1

REPORT INFORMATION
  Report Type: Report from Study
  Country: CA (occurrence: CA)
  Receive Date: 20150922
  Receipt Date: 20160218
  Transmission Date: 20160525
  Serious: Yes (Hospitalization, Other)
  Sender: FDA-Public Use
  Company Number: CA-AMGEN-CANSL2015095684

PATIENT
  Age: 85 Year
  Sex: Female

DRUGS (5)
  1. PENTALOC [Concomitant]
  2. ACCUPRIL [Concomitant]
     Active Substance: QUINAPRIL HYDROCHLORIDE
  3. METOPROLOL. [Concomitant]
     Active Substance: METOPROLOL
  4. ASA [Concomitant]
     Active Substance: ASPIRIN
     Dosage: EVERY OTHER DAY
  5. PROLIA [Suspect]
     Active Substance: DENOSUMAB
     Indication: OSTEOPOROSIS POSTMENOPAUSAL
     Dosage: 60 MG, Q6MO
     Route: 058
     Dates: start: 20150910

REACTIONS (9)
  - Pollakiuria [Unknown]
  - Paraesthesia [Unknown]
  - Joint swelling [Unknown]
  - Hospitalisation [Unknown]
  - Muscle spasms [Recovering/Resolving]
  - Erythema [Unknown]
  - Oedema peripheral [Unknown]
  - Dry skin [Unknown]
  - Arthralgia [Unknown]
